FAERS Safety Report 14991436 (Version 1)
Quarter: 2018Q2

REPORT INFORMATION
  Report Type: Spontaneous
  Country: US (occurrence: US)
  Receive Date: 20180608
  Receipt Date: 20180608
  Transmission Date: 20180711
  Serious: No
  Sender: FDA-Public Use
  Company Number: US-GLAXOSMITHKLINE-US2018GSK100172

PATIENT
  Age: 35 Year
  Sex: Female

DRUGS (1)
  1. NUCALA [Suspect]
     Active Substance: MEPOLIZUMAB
     Indication: PRODUCT USED FOR UNKNOWN INDICATION
     Dosage: UNK, Z
     Route: 058

REACTIONS (7)
  - Antinuclear antibody increased [Unknown]
  - Rash [Unknown]
  - Photophobia [Unknown]
  - Alopecia [Unknown]
  - Photosensitivity reaction [Unknown]
  - Myalgia [Unknown]
  - Fatigue [Unknown]
